FAERS Safety Report 10049067 (Version 1)
Quarter: 2014Q1

REPORT INFORMATION
  Report Type: Spontaneous
  Country: US (occurrence: US)
  Receive Date: 20140331
  Receipt Date: 20140331
  Transmission Date: 20141002
  Serious: No
  Sender: FDA-Public Use
  Company Number: US-009507513-1403USA012452

PATIENT
  Sex: Female

DRUGS (2)
  1. JANUMET [Suspect]
     Dosage: UNK
     Route: 048
  2. JANUMET [Suspect]
     Dosage: HALF OF ONE
     Route: 048

REACTIONS (2)
  - Dyspepsia [Not Recovered/Not Resolved]
  - Wrong technique in drug usage process [Unknown]
